FAERS Safety Report 8802198 (Version 1)
Quarter: 2012Q4

REPORT INFORMATION
  Report Type: 
  Country: FR (occurrence: FR)
  Receive Date: 20120921
  Receipt Date: 20120921
  Transmission Date: 20130627
  Serious: Yes (Hospitalization)
  Sender: FDA-Public Use
  Company Number: PHHY2012FR080311

PATIENT
  Age: 66 Year
  Sex: Male

DRUGS (3)
  1. VOLTARENE [Suspect]
     Indication: BACK PAIN
     Route: 048
     Dates: start: 201207, end: 201208
  2. VOLTARENE [Suspect]
     Indication: INTERVERTEBRAL DISC PROTRUSION
  3. BOTOX [Concomitant]
     Indication: EYELID PTOSIS

REACTIONS (7)
  - Fibromatosis [Unknown]
  - Bone marrow failure [Unknown]
  - Pallor [Unknown]
  - General physical condition abnormal [Unknown]
  - Platelet count decreased [Unknown]
  - Haemoglobin decreased [Unknown]
  - C-reactive protein increased [Unknown]
